FAERS Safety Report 12429677 (Version 2)
Quarter: 2016Q2

REPORT INFORMATION
  Report Type: Report from Study
  Country: MX (occurrence: MX)
  Receive Date: 20160602
  Receipt Date: 20160617
  Transmission Date: 20160815
  Serious: Yes (Other)
  Sender: FDA-Public Use
  Company Number: MX-BAYER-2016-105505

PATIENT
  Age: 30 Year
  Sex: Male

DRUGS (1)
  1. STIVARGA [Suspect]
     Active Substance: REGORAFENIB
     Indication: COLORECTAL CANCER
     Dosage: UNK
     Dates: start: 20160419

REACTIONS (20)
  - Fatigue [None]
  - Diarrhoea [Recovering/Resolving]
  - Skin induration [Recovering/Resolving]
  - Anorectal discomfort [Recovering/Resolving]
  - Erythema [Recovering/Resolving]
  - Frequent bowel movements [Recovering/Resolving]
  - Decreased appetite [Recovering/Resolving]
  - Palmar-plantar erythrodysaesthesia syndrome [Recovering/Resolving]
  - Aphthous ulcer [Recovering/Resolving]
  - Adverse event [Recovering/Resolving]
  - Rash erythematous [Recovering/Resolving]
  - Acne [Recovering/Resolving]
  - Alopecia [Recovering/Resolving]
  - Fatigue [Recovering/Resolving]
  - Condition aggravated [Recovering/Resolving]
  - Proctalgia [Recovering/Resolving]
  - Diarrhoea [Recovering/Resolving]
  - Pain [Recovering/Resolving]
  - Dyspepsia [Recovering/Resolving]
  - Glossodynia [Recovering/Resolving]

NARRATIVE: CASE EVENT DATE: 20160419
